FAERS Safety Report 8387928-5 (Version None)
Quarter: 2012Q2

REPORT INFORMATION
  Report Type: 
  Country: None (occurrence: None)
  Receive Date: 20120525
  Receipt Date: 20120517
  Transmission Date: 20120825
  Serious: Yes (Hospitalization)
  Sender: FDA-Public Use
  Company Number: US-MERCK-1202USA03895

PATIENT
  Sex: Female

DRUGS (2)
  1. FOSAMAX [Suspect]
     Indication: OSTEOPOROSIS
     Route: 048
     Dates: start: 19960101, end: 20110201
  2. FOSAMAX [Suspect]
     Route: 048
     Dates: start: 20080101, end: 20091001

REACTIONS (7)
  - LOW TURNOVER OSTEOPATHY [None]
  - FEMUR FRACTURE [None]
  - GINGIVITIS [None]
  - UTERINE DISORDER [None]
  - VITAMIN D DEFICIENCY [None]
  - GINGIVAL DISORDER [None]
  - ORAL DISORDER [None]
